FAERS Safety Report 10206802 (Version 1)
Quarter: 2014Q2

REPORT INFORMATION
  Report Type: Spontaneous
  Country: US (occurrence: None)
  Receive Date: 20140527
  Receipt Date: 20140527
  Transmission Date: 20141212
  Serious: Yes (Other)
  Sender: FDA-Public Use
  Company Number: None

PATIENT
  Age: 59 Year
  Sex: Male
  Weight: 68.04 kg

DRUGS (1)
  1. PHENYTOIND SOD EXT [Suspect]
     Indication: CONVULSION
     Route: 048
     Dates: start: 20140513, end: 20140518

REACTIONS (8)
  - Balance disorder [None]
  - Vision blurred [None]
  - Gait disturbance [None]
  - Fall [None]
  - Face injury [None]
  - Ligament sprain [None]
  - Nail avulsion [None]
  - Anticonvulsant drug level increased [None]
